FAERS Safety Report 9046360 (Version 4)
Quarter: 2013Q2

REPORT INFORMATION
  Report Type: Not Available
  Country: FR (occurrence: FR)
  Receive Date: 20130201
  Receipt Date: 20130521
  Transmission Date: 20140414
  Serious: Yes (Death, Hospitalization)
  Sender: FDA-Public Use
  Company Number: FR-NAPPMUNDI-GBR-2013-0013037

PATIENT
  Age: 49 Year
  Sex: Male

DRUGS (14)
  1. OXYCONTIN LP 10 MG, COMPRIME PELLICULE A LIBERATION PROLONGEE [Suspect]
     Indication: PAIN
     Dosage: 2 DF, BID
     Route: 048
     Dates: start: 20120611, end: 20121001
  2. OXYNORM 10MG/ML SOLUTION INJECTABLE [Suspect]
     Indication: PAIN
     Dosage: 1 DF, PRN
     Route: 042
     Dates: start: 20120611, end: 20121007
  3. VOLTARENE /00372302/ [Suspect]
     Dosage: 1 DF, BID
     Route: 003
  4. CARBOPLATIN [Suspect]
     Dosage: UNK
     Route: 042
     Dates: start: 20120924, end: 20121001
  5. DOLIPRANE [Suspect]
     Dosage: 1 G, Q72H
     Route: 048
     Dates: start: 20120623, end: 20120903
  6. INEXIUM /01479302/ [Suspect]
     Dosage: 40 MG, DAILY
     Route: 048
     Dates: start: 20120611, end: 20121001
  7. TENORMINE [Suspect]
     Dosage: 50 MG, Q48H
     Route: 048
     Dates: start: 20120611, end: 20121001
  8. CORTANCYL [Suspect]
     Dosage: UNK
     Route: 048
     Dates: start: 20120611, end: 20121001
  9. DIFFU K [Suspect]
     Dosage: 2 DF, BID
     Route: 048
     Dates: start: 20120921, end: 20121001
  10. PERFALGAN [Concomitant]
     Dosage: 10 MG/ML, UNK
     Route: 048
  11. EUPANTOL [Concomitant]
     Dosage: 40 MG, UNK
     Route: 048
  12. ARIXTRA [Concomitant]
     Dosage: 7.5 MG/ 0.6ML, UNK
     Dates: start: 20120810, end: 20121003
  13. ALIMTA [Concomitant]
     Dosage: UNK
     Dates: start: 20120723, end: 20120903
  14. HEMIGOXINE NATIVELLE [Concomitant]
     Dosage: UNK
     Dates: start: 20120701, end: 20121001

REACTIONS (2)
  - Pancreatitis acute [Fatal]
  - Malignant neoplasm progression [Fatal]
